FAERS Safety Report 23867332 (Version 1)
Quarter: 2024Q2

REPORT INFORMATION
  Report Type: Spontaneous
  Country: TR (occurrence: TR)
  Receive Date: 20240517
  Receipt Date: 20240517
  Transmission Date: 20240716
  Serious: Yes (Other)
  Sender: FDA-Public Use
  Company Number: TR-AMGEN-TURSP2024096016

PATIENT
  Age: 58 Year
  Sex: Male

DRUGS (4)
  1. BEVACIZUMAB [Suspect]
     Active Substance: BEVACIZUMAB
     Indication: Keratitis
     Dosage: UNK
  2. VANCOMYCIN [Concomitant]
     Active Substance: VANCOMYCIN
     Indication: Keratitis
     Dosage: UNK
  3. CEFTAZIDIME [Concomitant]
     Active Substance: CEFTAZIDIME
     Indication: Keratitis
     Dosage: UNK
  4. DIMETHICONE [Concomitant]
     Active Substance: DIMETHICONE
     Indication: Keratitis
     Dosage: UNK
     Route: 065

REACTIONS (2)
  - Aphakia [Unknown]
  - Off label use [Unknown]
